FAERS Safety Report 6340597-8 (Version None)
Quarter: 2009Q3

REPORT INFORMATION
  Report Type: 
  Country: None (occurrence: None)
  Receive Date: 20090904
  Receipt Date: 20090903
  Transmission Date: 20100115
  Serious: Yes (Other)
  Sender: FDA-Public Use
  Company Number: US-BAYER-200714501BWH

PATIENT
  Age: 79 Year
  Sex: Male

DRUGS (1)
  1. NEXAVAR [Suspect]
     Indication: RENAL NEOPLASM
     Dosage: TOTAL DAILY DOSE: 800 MG  UNIT DOSE: 200 MG
     Route: 048
     Dates: start: 20060101

REACTIONS (7)
  - ACNE [None]
  - BLOOD PRESSURE INCREASED [None]
  - DIARRHOEA [None]
  - GASTRIC ULCER [None]
  - HEADACHE [None]
  - OCCULT BLOOD POSITIVE [None]
  - SCAR [None]
